FAERS Safety Report 5005730-9 (Version None)
Quarter: 2006Q2

REPORT INFORMATION
  Report Type: 
  Country: None (occurrence: None)
  Receive Date: 20060518
  Receipt Date: 20060510
  Transmission Date: 20061013
  Serious: Yes (Other)
  Sender: FDA-Public Use
  Company Number: 2006UW09257

PATIENT
  Age: 1 Year
  Sex: Male
  Weight: 9.5 kg

DRUGS (10)
  1. PULMICORT RESPULES [Suspect]
     Indication: RESPIRATORY DISORDER
     Route: 055
  2. CLONOPIN [Concomitant]
  3. KEPPRA [Concomitant]
  4. PHENOBARB [Concomitant]
  5. PREVACID [Concomitant]
  6. ZANTAC [Concomitant]
  7. TOPAMAX [Concomitant]
  8. RUBINAL [Concomitant]
  9. AMOXIL [Concomitant]
  10. ATROVENT [Concomitant]

REACTIONS (2)
  - CONDITION AGGRAVATED [None]
  - CONVULSION [None]
